FAERS Safety Report 7623451-0 (Version None)
Quarter: 2011Q3

REPORT INFORMATION
  Report Type: 
  Country: None (occurrence: None)
  Receive Date: 20110720
  Receipt Date: 20110711
  Transmission Date: 20111222
  Serious: Yes (Death, Hospitalization, Other)
  Sender: FDA-Public Use
  Company Number: PHHY2011GB61373

PATIENT
  Age: 7 Year
  Sex: Female
  Weight: 18 kg

DRUGS (8)
  1. METHOTREXATE [Suspect]
     Dosage: 7.4 MG, QD
     Route: 040
     Dates: start: 20101124, end: 20101124
  2. CYCLOPHOSPHAMIDE [Suspect]
     Indication: BONE MARROW TRANSPLANT
     Dosage: 50 MG/KG, UNK
     Route: 042
     Dates: start: 20101112, end: 20101115
  3. ALEMTUZUMAB [Concomitant]
     Dosage: 0.3 MG/KG, UNK
  4. MEROPENEM [Concomitant]
  5. CYCLOSPORINE [Concomitant]
     Indication: GRAFT VERSUS HOST DISEASE
  6. METHOTREXATE [Suspect]
     Indication: GRAFT VERSUS HOST DISEASE
     Dosage: 7.4 MG, QD
     Route: 040
     Dates: start: 20101121, end: 20101121
  7. BUSULFAN [Suspect]
     Indication: BONE MARROW TRANSPLANT
     Dosage: 1 MG/KG, QID
     Route: 048
     Dates: start: 20101108, end: 20101111
  8. THIOTEPA [Concomitant]
     Dosage: 10 MG/KG, UNK

REACTIONS (15)
  - URINARY TRACT INFECTION [None]
  - RESPIRATORY DISTRESS [None]
  - CARDIO-RESPIRATORY ARREST [None]
  - METAPNEUMOVIRUS INFECTION [None]
  - BRONCHOALVEOLAR LAVAGE [None]
  - LEUKOENCEPHALOPATHY [None]
  - PNEUMONIA CYTOMEGALOVIRAL [None]
  - FEBRILE NEUTROPENIA [None]
  - CREPITATIONS [None]
  - IDIOPATHIC PNEUMONIA SYNDROME [None]
  - DEEP VEIN THROMBOSIS [None]
  - PERIORBITAL OEDEMA [None]
  - WEIGHT DECREASED [None]
  - COUGH [None]
  - MUCOSAL INFLAMMATION [None]
